FAERS Safety Report 5511058-0 (Version None)
Quarter: 2007Q4

REPORT INFORMATION
  Report Type: 
  Country: None (occurrence: None)
  Receive Date: 20071107
  Receipt Date: 20071023
  Transmission Date: 20080405
  Serious: Yes (Other)
  Sender: FDA-Public Use
  Company Number: 001#1#2007-00671

PATIENT
  Sex: Male

DRUGS (1)
  1. NEUPRO [Suspect]
     Route: 062

REACTIONS (1)
  - CACHEXIA [None]
